FAERS Safety Report 6686510-5 (Version None)
Quarter: 2010Q2

REPORT INFORMATION
  Report Type: 
  Country: None (occurrence: None)
  Receive Date: 20100415
  Receipt Date: 20100401
  Transmission Date: 20101027
  Serious: Yes (Hospitalization)
  Sender: FDA-Public Use
  Company Number: 009578

PATIENT
  Sex: Male
  Weight: 126.5 kg

DRUGS (12)
  1. CIMZIA [Suspect]
     Indication: CROHN'S DISEASE
     Dosage: SUBCUTANEOUS
     Route: 058
     Dates: start: 20090529
  2. LAMOTHRIGINE [Concomitant]
  3. HYDROCHLOROTHIAZIDE [Concomitant]
  4. PROTONIX [Concomitant]
  5. CHOLESTEROL AND TRIGLYCERIDE REDUCERS [Concomitant]
  6. LITHIUM CARBONATE [Concomitant]
  7. POTASSIUM [Concomitant]
  8. SEROQUEL [Concomitant]
  9. AMBIEN [Concomitant]
  10. DAILY VITAMINS [Concomitant]
  11. FISH OIL [Concomitant]
  12. B-12 LATINO [Concomitant]

REACTIONS (3)
  - COLITIS [None]
  - PNEUMONIA [None]
  - THROMBOSIS [None]
